FAERS Safety Report 26045548 (Version 1)
Quarter: 2025Q4

REPORT INFORMATION
  Report Type: Spontaneous
  Country: CN (occurrence: CN)
  Receive Date: 20251114
  Receipt Date: 20251114
  Transmission Date: 20260118
  Serious: Yes (Hospitalization)
  Sender: CHEPLAPHARM
  Company Number: CN-ASTRAZENECA-202411GLO014035CN

PATIENT
  Age: 61 Year
  Sex: Female
  Weight: 67 kg

DRUGS (4)
  1. CAPECITABINE [Suspect]
     Active Substance: CAPECITABINE
     Indication: Triple negative breast cancer
     Dosage: Q3W
     Route: 048
     Dates: start: 20240508, end: 20241014
  2. DATOPOTAMAB DERUXTECAN [Suspect]
     Active Substance: DATOPOTAMAB DERUXTECAN
     Indication: Triple negative breast cancer
     Route: 042
  3. RIVAROXABAN [Concomitant]
     Active Substance: RIVAROXABAN
     Dosage: ONGOING
     Dates: start: 20240320
  4. TENOFOVIR [Concomitant]
     Active Substance: TENOFOVIR
     Dosage: ONGOING
     Dates: start: 20240410

REACTIONS (1)
  - Granuloma [Recovered/Resolved]

NARRATIVE: CASE EVENT DATE: 20241016
